FAERS Safety Report 23799143 (Version 1)
Quarter: 2024Q2

REPORT INFORMATION
  Report Type: Other
  Country: IT (occurrence: None)
  Receive Date: 20240430
  Receipt Date: 20240430
  Transmission Date: 20240716
  Serious: Yes (Other)
  Sender: FDA-Public Use
  Company Number: IT-ROCHE-3553012

PATIENT

DRUGS (6)
  1. RITUXIMAB [Suspect]
     Active Substance: RITUXIMAB
     Indication: Follicular lymphoma
     Route: 065
  2. BENDAMUSTINE [Suspect]
     Active Substance: BENDAMUSTINE
     Indication: Follicular lymphoma
     Route: 065
  3. CYCLOPHOSPHAMIDE [Suspect]
     Active Substance: CYCLOPHOSPHAMIDE
     Indication: Follicular lymphoma
     Route: 065
  4. DOXORUBICIN [Suspect]
     Active Substance: DOXORUBICIN
     Indication: Follicular lymphoma
     Route: 065
  5. VINCRISTINE [Suspect]
     Active Substance: VINCRISTINE
     Indication: Follicular lymphoma
     Route: 065
  6. PREDNISONE [Suspect]
     Active Substance: PREDNISONE
     Indication: Follicular lymphoma
     Route: 065

REACTIONS (16)
  - Haematotoxicity [Unknown]
  - Infection [Unknown]
  - Skin toxicity [Unknown]
  - Paraesthesia [Unknown]
  - Intestinal perforation [Unknown]
  - Spinal fracture [Unknown]
  - Dilated cardiomyopathy [Unknown]
  - Pulmonary embolism [Unknown]
  - Plasma cell myeloma [Unknown]
  - Bladder cancer [Unknown]
  - Colon cancer [Unknown]
  - Squamous cell carcinoma of skin [Unknown]
  - Lung neoplasm malignant [Unknown]
  - Uterine cancer [Unknown]
  - Gastrointestinal disorder [Unknown]
  - Prostate cancer [Unknown]
